FAERS Safety Report 6662239-4 (Version None)
Quarter: 2010Q1

REPORT INFORMATION
  Report Type: 
  Country: None (occurrence: None)
  Receive Date: 20100331
  Receipt Date: 20100319
  Transmission Date: 20100710
  Serious: Yes (Other)
  Sender: FDA-Public Use
  Company Number: CA-PFIZER INC-2010035405

PATIENT
  Sex: Female

DRUGS (1)
  1. LYRICA [Suspect]
     Indication: NERVE COMPRESSION
     Dosage: UNK

REACTIONS (4)
  - DYSPHAGIA [None]
  - GENERALISED OEDEMA [None]
  - JOINT SWELLING [None]
  - SWOLLEN TONGUE [None]
